FAERS Safety Report 8883083 (Version 2)
Quarter: 2012Q4

REPORT INFORMATION
  Report Type: 
  Country: US (occurrence: US)
  Receive Date: 20121104
  Receipt Date: 20121112
  Transmission Date: 20130627
  Serious: Yes (Hospitalization, Other)
  Sender: FDA-Public Use
  Company Number: US-JNJFOC-20121012961

PATIENT
  Age: 56 None
  Sex: Male
  Weight: 90.72 kg

DRUGS (7)
  1. RISPERDAL CONSTA [Suspect]
     Indication: SCHIZOPHRENIA, PARANOID TYPE
     Route: 030
  2. RISPERDAL CONSTA [Suspect]
     Indication: SCHIZOPHRENIA, PARANOID TYPE
     Route: 030
  3. RISPERDAL CONSTA [Suspect]
     Indication: SCHIZOPHRENIA, PARANOID TYPE
     Route: 030
  4. RISPERDAL CONSTA [Suspect]
     Indication: SCHIZOPHRENIA, PARANOID TYPE
     Route: 030
  5. DEPAKOTE [Suspect]
     Indication: BIPOLAR DISORDER
     Route: 048
  6. DEPAKOTE [Suspect]
     Indication: PSYCHOTIC DISORDER
     Route: 048
  7. UNKNOWN MEDICATION [Concomitant]
     Route: 065

REACTIONS (9)
  - Convulsion [Recovered/Resolved]
  - Dyskinesia [Recovered/Resolved]
  - Paranoia [Not Recovered/Not Resolved]
  - Injection site pain [Not Recovered/Not Resolved]
  - Nail infection [Recovered/Resolved]
  - Psychotic disorder [Recovered/Resolved]
  - Liquid product physical issue [Unknown]
  - Refusal of treatment by patient [Recovered/Resolved]
  - Drug dose omission [Recovered/Resolved]
